FAERS Safety Report 22270954 (Version 1)
Quarter: 2023Q2

REPORT INFORMATION
  Report Type: Spontaneous
  Country: CN (occurrence: CN)
  Receive Date: 20230501
  Receipt Date: 20230501
  Transmission Date: 20230721
  Serious: Yes (Hospitalization, Other)
  Sender: FDA-Public Use
  Company Number: CN-teijin-202301194_FE_P_1

PATIENT
  Age: 45 Year
  Sex: Male

DRUGS (1)
  1. FEBUXOSTAT [Suspect]
     Active Substance: FEBUXOSTAT
     Indication: Urate nephropathy
     Dosage: 40 MILLIGRAM, QD
     Route: 048
     Dates: start: 20200108, end: 2020

REACTIONS (8)
  - Acute kidney injury [Unknown]
  - Eosinophilic pneumonia [Unknown]
  - Eosinophil count increased [Unknown]
  - Pyrexia [Recovered/Resolved]
  - Internal injury [Unknown]
  - Hepatic function abnormal [Unknown]
  - Rash [Unknown]
  - Off label use [Unknown]

NARRATIVE: CASE EVENT DATE: 20200101
